FAERS Safety Report 7557852-6 (Version None)
Quarter: 2011Q2

REPORT INFORMATION
  Report Type: 
  Country: None (occurrence: None)
  Receive Date: 20110620
  Receipt Date: 20110614
  Transmission Date: 20111010
  Serious: Yes (Other)
  Sender: FDA-Public Use
  Company Number: AU-PFIZER INC-2011130237

PATIENT
  Age: 44 Year
  Sex: Male

DRUGS (2)
  1. ALPRAZOLAM [Suspect]
     Dosage: 1 MG, 2X/DAY
  2. ETHANOL [Suspect]

REACTIONS (5)
  - DRUG DEPENDENCE [None]
  - SUICIDAL IDEATION [None]
  - ALCOHOL POISONING [None]
  - ROAD TRAFFIC ACCIDENT [None]
  - ABNORMAL BEHAVIOUR [None]
